FAERS Safety Report 7957087 (Version 5)
Quarter: 2014Q2

REPORT INFORMATION
  Report Type: Spontaneous
  Country: US (occurrence: US)
  Receive Date: 20110524
  Receipt Date: 20140515
  Transmission Date: 20141212
  Serious: Yes (Death)
  Sender: FDA-Public Use
  Company Number: US-JNJFOC-20110506998

PATIENT
  Sex: Male
  Weight: 6.8 kg

DRUGS (4)
  1. INFANT^S TYLENOL [Suspect]
     Indication: IRRITABILITY
     Route: 048
     Dates: start: 20100414, end: 20100414
  2. INFANT^S TYLENOL [Suspect]
     Indication: DISCOMFORT
     Route: 048
     Dates: start: 20100414, end: 20100414
  3. INFANT^S TYLENOL [Suspect]
     Indication: PYREXIA
     Route: 048
     Dates: start: 20100414, end: 20100414
  4. ASTHMA INHALER [Concomitant]

REACTIONS (5)
  - Sepsis [Fatal]
  - Gastroenteritis [Fatal]
  - Product quality issue [Unknown]
  - Cardiac arrest [Fatal]
  - Aspiration [Fatal]
